FAERS Safety Report 16016992 (Version 1)
Quarter: 2019Q1

REPORT INFORMATION
  Report Type: Spontaneous
  Country: US (occurrence: US)
  Receive Date: 20190131
  Receipt Date: 20190131
  Transmission Date: 20190418
  Serious: No
  Sender: FDA-Public Use
  Company Number: None

PATIENT
  Age: 52 Year
  Sex: Female

DRUGS (1)
  1. TALTZ [Suspect]
     Active Substance: IXEKIZUMAB
     Indication: PSORIASIS
     Dosage: INJECT 80MG (1 SYRINGE) SUBCUTANEOUSLY EVERY 2 WEEKS AS DIRECTED FOR WEEKS 4-12
     Route: 058
     Dates: start: 201705

REACTIONS (1)
  - Sinusitis [None]
